FAERS Safety Report 7368306-4 (Version None)
Quarter: 2011Q1

REPORT INFORMATION
  Report Type: 
  Country: None (occurrence: None)
  Receive Date: 20110311
  Receipt Date: 20110224
  Transmission Date: 20110831
  Serious: Yes (Other)
  Sender: FDA-Public Use
  Company Number: ACO_21935_2011

PATIENT
  Age: 49 Year
  Sex: Female

DRUGS (6)
  1. AMPYRA [Suspect]
     Indication: PRODUCT USED FOR UNKNOWN INDICATION
     Dosage: 10 MG, BID, ORAL
     Dates: start: 20100429
  2. SOLU-MEDROL [Concomitant]
  3. KADIAN [Concomitant]
  4. GILENYA [Suspect]
     Indication: PRODUCT USED FOR UNKNOWN INDICATION
  5. TIZANIDINE (TIZANIDINE) [Concomitant]
  6. PERCOCET [Concomitant]

REACTIONS (2)
  - WHITE BLOOD CELL COUNT DECREASED [None]
  - MUSCLE SPASMS [None]
